FAERS Safety Report 25822944 (Version 2)
Quarter: 2025Q3

REPORT INFORMATION
  Report Type: Spontaneous
  Country: JP (occurrence: JP)
  Receive Date: 20250919
  Receipt Date: 20250930
  Transmission Date: 20251020
  Serious: Yes (Death, Life-Threatening, Hospitalization, Other)
  Sender: STRIDES
  Company Number: None

PATIENT
  Age: 75 Year
  Sex: Female

DRUGS (1)
  1. PREDNISOLONE [Suspect]
     Active Substance: PREDNISOLONE
     Indication: Immunoglobulin G4 related disease
     Route: 065

REACTIONS (15)
  - Haemorrhagic cerebral infarction [Fatal]
  - Central nervous system vasculitis [Fatal]
  - Encephalitis [Fatal]
  - Disseminated mucormycosis [Fatal]
  - Pneumonia influenzal [Fatal]
  - Brain herniation [Fatal]
  - Mucormycosis [Fatal]
  - Pulmonary infarction [Fatal]
  - Kidney infection [Fatal]
  - Organising pneumonia [Fatal]
  - Pancytopenia [Unknown]
  - Hemiplegia [Unknown]
  - Ischaemic stroke [Unknown]
  - Metastases to meninges [Unknown]
  - Off label use [Unknown]
